FAERS Safety Report 4451657-0 (Version None)
Quarter: 2004Q3

REPORT INFORMATION
  Report Type: 
  Country: None (occurrence: None)
  Receive Date: 20040915
  Receipt Date: 20040902
  Transmission Date: 20050211
  Serious: Yes (Hospitalization)
  Sender: FDA-Public Use
  Company Number: 2004061672

PATIENT
  Age: 80 Year
  Sex: Female
  Weight: 85 kg

DRUGS (1)
  1. NORVASC [Suspect]
     Indication: ILL-DEFINED DISORDER
     Dosage: 10 MG (5 MG, 2 IN 1 D), ORAL
     Route: 048

REACTIONS (2)
  - HYPERTENSIVE CRISIS [None]
  - VERTIGO [None]
